FAERS Safety Report 9671297 (Version 2)
Quarter: 2013Q4

REPORT INFORMATION
  Report Type: Spontaneous
  Country: US (occurrence: US)
  Receive Date: 20131106
  Receipt Date: 20131106
  Transmission Date: 20140711
  Serious: Yes (Hospitalization)
  Sender: FDA-Public Use
  Company Number: US-B.I. PHARMACEUTICALS,INC./RIDGEFIELD-2013-BI-13756BP

PATIENT
  Age: 72 Year
  Sex: Female
  Weight: 74.84 kg

DRUGS (16)
  1. PRADAXA [Suspect]
     Indication: ANTICOAGULANT THERAPY
     Dosage: 300 MG
     Route: 048
     Dates: start: 20111020, end: 20111130
  2. LOPRESSOR [Concomitant]
     Dosage: 200 MG
     Route: 048
     Dates: start: 2011
  3. JANUVIA [Concomitant]
     Dosage: 100 MG
     Route: 048
     Dates: start: 2009
  4. SYNTHROID [Concomitant]
     Dosage: 50 MCG
     Route: 048
     Dates: start: 2009
  5. ZOCOR [Concomitant]
     Dosage: 40 MG
     Route: 048
     Dates: start: 2006, end: 2011
  6. ADVAIR DISKUS [Concomitant]
     Dosage: 1 PUF
     Route: 055
  7. SPIRIVA [Concomitant]
     Dosage: 18 MCG
     Route: 055
     Dates: start: 2011
  8. LASIX [Concomitant]
     Dosage: 40 MG
     Route: 048
     Dates: start: 2009
  9. PROAIR [Concomitant]
     Route: 055
  10. ATIVAN [Concomitant]
     Dosage: 5 MG
     Route: 048
     Dates: start: 2010
  11. LANOXIN [Concomitant]
     Dosage: 125 MCG
     Route: 048
     Dates: start: 2011, end: 2012
  12. KLOR-CON [Concomitant]
     Dosage: 20 MEQ
     Route: 048
     Dates: start: 2009
  13. MAGONATE [Concomitant]
     Dosage: 500 MG
     Route: 048
  14. AMARYL [Concomitant]
     Dosage: 100 MG
     Route: 048
     Dates: start: 2009, end: 2011
  15. NYSTATIN [Concomitant]
  16. METRONIDAZOLE [Concomitant]

REACTIONS (2)
  - Lower gastrointestinal haemorrhage [Recovered/Resolved]
  - Fall [Unknown]
